FAERS Safety Report 20056438 (Version 1)
Quarter: 2021Q4

REPORT INFORMATION
  Report Type: Other
  Country: DE (occurrence: DE)
  Receive Date: 20211111
  Receipt Date: 20211111
  Transmission Date: 20220303
  Serious: Yes (Other)
  Sender: FDA-Public Use
  Company Number: DE-EMBRYOTOX-202011776

PATIENT
  Age: 33 Year
  Sex: Female
  Weight: 79 kg

DRUGS (5)
  1. QUETIAPINE [Suspect]
     Active Substance: QUETIAPINE
     Indication: Schizoaffective disorder
     Dosage: 400 MILLIGRAM, QD (0- 38.5. GESTATIONAL WEEK)
     Route: 048
     Dates: start: 20201001, end: 20210629
  2. ABILIFY [Suspect]
     Active Substance: ARIPIPRAZOLE
     Indication: Schizoaffective disorder
     Dosage: 5 MILLIGRAM, QD (0- 34.5. GESTATIONAL WEEK)
     Route: 048
     Dates: start: 20201001, end: 20210601
  3. LEVOTHYROXINE SODIUM [Suspect]
     Active Substance: LEVOTHYROXINE SODIUM
     Indication: Autoimmune thyroiditis
     Dosage: 75 MICROGRAM, QD (0 - 38.5. GESTATIONAL WEEK)
     Route: 048
     Dates: start: 20201001, end: 20210629
  4. BOOSTRIX [Suspect]
     Active Substance: TETANUS TOXOID, REDUCED DIPHTHERIA TOXOID AND ACELLULAR PERTUSSIS VACCINE, ADSORBED ANTIGENS
     Indication: Immunisation
     Dosage: UNK (31.4-31.4GESTATIONAL WEEK)
     Route: 030
     Dates: start: 20210510, end: 20210510
  5. FOLIC ACID\VITAMINS [Suspect]
     Active Substance: FOLIC ACID\VITAMINS
     Indication: Prophylaxis of neural tube defect
     Dosage: 0.8 MILLIGRAM PER DAY (3.5 - 38.5 GESTATIONAL WEEK)
     Route: 048
     Dates: start: 20201027, end: 20210629

REACTIONS (3)
  - Gestational diabetes [Recovered/Resolved]
  - Exposure during pregnancy [Unknown]
  - Normal newborn [Unknown]
